FAERS Safety Report 7599249-9 (Version None)
Quarter: 2011Q3

REPORT INFORMATION
  Report Type: 
  Country: None (occurrence: None)
  Receive Date: 20110711
  Receipt Date: 20090331
  Transmission Date: 20111222
  Serious: Yes (Death, Other)
  Sender: FDA-Public Use
  Company Number: US-BAYER-200917179NA

PATIENT
  Age: 50 Year
  Sex: Female
  Weight: 70.5 kg

DRUGS (25)
  1. COUMADIN [Concomitant]
     Dosage: UNK
  2. NEURONTIN [Concomitant]
  3. SENSIPAR [Concomitant]
  4. OMNISCAN [Suspect]
     Indication: NUCLEAR MAGNETIC RESONANCE IMAGING
     Dosage: UNK, ONCE
     Dates: start: 19980417, end: 19980417
  5. POTASSIUM CHLORIDE [Concomitant]
  6. AMIODARONE HCL [Concomitant]
  7. OMNISCAN [Suspect]
     Dosage: UNK, ONCE
     Dates: start: 19980422, end: 19980422
  8. PROHANCE [Suspect]
     Indication: NUCLEAR MAGNETIC RESONANCE IMAGING
  9. CLONIDINE [Concomitant]
  10. NEPHROCAPS [Concomitant]
  11. GADOLINIUM IN UNSPECIFIED DRUG [Suspect]
     Indication: NUCLEAR MAGNETIC RESONANCE IMAGING
     Dosage: UNK, ONCE
     Dates: start: 19980422, end: 19980422
  12. GADOLINIUM IN UNSPECIFIED DRUG [Suspect]
     Indication: X-RAY
     Dosage: UNK, ONCE
     Route: 042
     Dates: start: 20030214, end: 20030214
  13. WARFARIN SODIUM [Concomitant]
  14. LISINOPRIL [Concomitant]
  15. LANOXIN [Concomitant]
     Dosage: UNK
  16. RENAGEL [Concomitant]
  17. COREG [Concomitant]
  18. SIMVASTATIN [Concomitant]
  19. DEXAMETHASONE [Concomitant]
  20. MAGNEVIST [Suspect]
     Indication: NUCLEAR MAGNETIC RESONANCE IMAGING
     Dosage: 15 ML, ONCE
     Dates: start: 20070406, end: 20070406
  21. MULTIHANCE [Suspect]
     Indication: NUCLEAR MAGNETIC RESONANCE IMAGING
  22. OPTIMARK [Suspect]
     Indication: NUCLEAR MAGNETIC RESONANCE IMAGING
  23. GADOLINIUM IN UNSPECIFIED DRUG [Suspect]
     Indication: NUCLEAR MAGNETIC RESONANCE IMAGING BRAIN
     Dosage: UNK UNK, ONCE
     Dates: start: 19980417, end: 19980417
  24. EPOGEN [Concomitant]
  25. ROCALTROL [Concomitant]

REACTIONS (3)
  - SKIN FIBROSIS [None]
  - NEPHROGENIC SYSTEMIC FIBROSIS [None]
  - PAIN [None]
